FAERS Safety Report 20704000 (Version 1)
Quarter: 2022Q2

REPORT INFORMATION
  Report Type: Report from Study
  Country: ES (occurrence: ES)
  Receive Date: 20220413
  Receipt Date: 20220413
  Transmission Date: 20220720
  Serious: Yes (Other)
  Sender: FDA-Public Use
  Company Number: None

PATIENT
  Age: 59 Year
  Sex: Male

DRUGS (9)
  1. FENTANYL CITRATE [Suspect]
     Active Substance: FENTANYL CITRATE
     Indication: Pain
     Dosage: EFFENTORA 100 MICROGRAMS BUCCAL TABLETS, 28 TABLETS,UNIT DOSE 100MCG,FREQUENCY TIME 6 HOURS
     Route: 048
     Dates: start: 20220228
  2. CARBOPLATIN [Suspect]
     Active Substance: CARBOPLATIN
     Indication: Lung neoplasm malignant
     Dosage: CARBOPLATINO PHARMACIA 10 MG/ML CONCENTRATE FOR SOLUTION FOR INFUSION EFG, 1 VIAL OF 45 ML, UNIT DOS
     Route: 042
     Dates: start: 20220302
  3. VINORELBINE [Suspect]
     Active Substance: VINORELBINE TARTRATE
     Indication: Lung neoplasm malignant
     Dosage: VINORELBINE GLENMARK 30 MG SOFT CAPSULES EFG, 1 CAPSULE, UNIT DOSE 90MG,FREQUENCY TIME 1 AS REQUIRED
     Route: 048
     Dates: start: 20220302
  4. FENTANYL TRANSDERMAL SYSTEM [Suspect]
     Active Substance: FENTANYL
     Indication: Pain
     Dosage: FENTANYL MATRIX STADA 50 MICROGRAMS/H TRANSDERMAL PATCH EFG, 5 PATCHES, UNIT DOSE 50MCG,FREQUENCY TI
     Route: 062
     Dates: start: 20220228
  5. DIAZEPAN PRODES [Concomitant]
     Dosage: DIAZEPAN PRODES 5 MG TABLETS, 30 TABLETS,UNIT DOSE 5MG,FREQUENCY TIME 1 DAYS
     Route: 048
     Dates: start: 20220214
  6. CILOSTAZOL STADA [Concomitant]
     Dosage: CILOSTAZOL STADA 100 MG TABLETS EFG, 56 TABLETS, UNIT DOSE 100MG,FREQUENCY TIME 12 HOURS
     Route: 048
     Dates: start: 20220211
  7. ASPIRIN [Concomitant]
     Active Substance: ASPIRIN
     Dosage: ADIRO 100 MG GASTRO-RESISTANT TABLETS EFG, 30 TABLETS (PVC- ALUMINUM), UNIT DOSE 100MG,  FREQUENCY T
     Route: 048
     Dates: start: 20220211
  8. SIMVASTATIN [Concomitant]
     Active Substance: SIMVASTATIN
     Dosage: SIMVASTATIN STADA 20 MG FILM-COATED TABLETS, 28 TABLETS,UNIT DOSE 20MG,FREQUENCY TIME 1 DAYS
     Route: 048
     Dates: start: 20220211
  9. OMEPRAZOLE [Concomitant]
     Active Substance: OMEPRAZOLE
     Dosage: OMEPRAZOL STADA 20 MG GASTRO-RESISTANT CAPSULES, HARD EFG, 28 CAPSULES,UNIT DOSE 20MG,FREQUENCY TIME
     Route: 048
     Dates: start: 20220211

REACTIONS (2)
  - Condition aggravated [Unknown]
  - Asthenia [Unknown]

NARRATIVE: CASE EVENT DATE: 20220308
